FAERS Safety Report 5769158-6 (Version None)
Quarter: 2008Q2

REPORT INFORMATION
  Report Type: 
  Country: None (occurrence: None)
  Receive Date: 20080610
  Receipt Date: 20080508
  Transmission Date: 20081010
  Serious: Yes (Life-Threatening, Hospitalization, Disabling)
  Sender: FDA-Public Use
  Company Number: 2008S1007991

PATIENT
  Age: 59 Year
  Sex: Male

DRUGS (4)
  1. WARFARIN (WARFARIN) ORAL SEP2006: 24APR2008 [Suspect]
     Indication: ATRIAL FIBRILLATION
     Dosage: ORAL
     Route: 048
     Dates: start: 20060901, end: 20080424
  2. BENDROFLUMETHIAZIDE (BENDROFLUMETHIAZIDE) [Concomitant]
  3. BISOPROLOL FUMARATE [Concomitant]
  4. VALSARTAN [Concomitant]

REACTIONS (1)
  - CEREBRAL HAEMORRHAGE [None]
